FAERS Safety Report 7918317-2 (Version None)
Quarter: 2011Q4

REPORT INFORMATION
  Report Type: 
  Country: None (occurrence: None)
  Receive Date: 20111116
  Receipt Date: 20111114
  Transmission Date: 20120403
  Serious: No
  Sender: FDA-Public Use
  Company Number: US-PFIZER INC-2011278048

PATIENT
  Sex: Female
  Weight: 68 kg

DRUGS (2)
  1. LITHIUM CARBONATE [Suspect]
     Indication: BIPOLAR DISORDER
     Dosage: 300 MG IN MORNING + 600 MG AT NIGHT
     Route: 048
     Dates: start: 20110801, end: 20111109
  2. LYBREL [Suspect]
     Indication: CONTRACEPTION
     Dosage: UNK, 1X/DAY
     Route: 048
     Dates: start: 20080101

REACTIONS (1)
  - METRORRHAGIA [None]
